FAERS Safety Report 25620851 (Version 2)
Quarter: 2025Q3

REPORT INFORMATION
  Report Type: Spontaneous
  Country: US (occurrence: US)
  Receive Date: 20250730
  Receipt Date: 20250930
  Transmission Date: 20251021
  Serious: Yes (Hospitalization, Other)
  Sender: CATALYST PHARMA
  Company Number: US-CATALYST PHARMACEUTICALS-US-CATA-25-01075

PATIENT
  Age: 11 Year
  Sex: Male
  Weight: 42.295 kg

DRUGS (15)
  1. AGAMREE [Suspect]
     Active Substance: VAMOROLONE
     Indication: Duchenne muscular dystrophy
     Dosage: 4.9 ML EVERYDAY
     Route: 048
     Dates: start: 20240226
  2. AGAMREE [Suspect]
     Active Substance: VAMOROLONE
     Dosage: 5.6 ML IN THE MORNING
     Route: 048
     Dates: start: 20250620
  3. ALBUTEROL [Concomitant]
     Active Substance: ALBUTEROL
     Indication: Pneumonia
     Route: 055
  4. CLARITIN [Concomitant]
     Active Substance: LORATADINE
     Indication: Hypersensitivity
     Dosage: 5 MG ONCE A DAY
     Route: 065
  5. CLOBETASOL [Concomitant]
     Active Substance: CLOBETASOL
     Indication: Psoriasis
     Route: 061
  6. MULTIVITAMIN GUMMY [Concomitant]
     Indication: Hypovitaminosis
     Route: 065
  7. VITAMIN D3 [Concomitant]
     Active Substance: CHOLECALCIFEROL
     Indication: Hypovitaminosis
     Route: 065
  8. LISINOPRIL [Concomitant]
     Active Substance: LISINOPRIL
     Indication: Cardiovascular event prophylaxis
     Dosage: 5 MG ONCE A DAY
     Route: 065
  9. TACROLIMUS [Concomitant]
     Active Substance: TACROLIMUS
     Indication: Psoriasis
     Dosage: 0.1% APPLIED DAILY
     Route: 061
  10. ZOFRAN [Concomitant]
     Active Substance: ONDANSETRON HYDROCHLORIDE
     Indication: Nausea
     Route: 065
  11. ZORYVE [Concomitant]
     Active Substance: ROFLUMILAST
     Indication: Psoriasis
     Dosage: 0.3% ONCE A DAY
     Route: 061
  12. ADDERALL XR [Concomitant]
     Active Substance: AMPHETAMINE ASPARTATE\AMPHETAMINE SULFATE\DEXTROAMPHETAMINE SACCHARATE\DEXTROAMPHETAMINE SULFATE
     Indication: Mental disorder
     Dosage: 10 MG ONCE A DAY
     Route: 065
  13. ELEVIDYS [Concomitant]
     Active Substance: DELANDISTROGENE MOXEPARVOVEC-ROKL
     Indication: Product used for unknown indication
     Route: 065
     Dates: start: 20250127
  14. PREDNISONE [Concomitant]
     Active Substance: PREDNISONE
     Indication: Gene therapy
     Dosage: 3.5 TABLETS ONCE A DAY
     Route: 065
     Dates: start: 20250123, end: 20250519
  15. PREDNISONE [Concomitant]
     Active Substance: PREDNISONE
     Indication: Prophylaxis

REACTIONS (2)
  - Obstructive sleep apnoea syndrome [Unknown]
  - Product dose omission issue [Recovered/Resolved]

NARRATIVE: CASE EVENT DATE: 20250709
